FAERS Safety Report 21920196 (Version 1)
Quarter: 2023Q1

REPORT INFORMATION
  Report Type: Spontaneous
  Country: FR (occurrence: FR)
  Receive Date: 20230127
  Receipt Date: 20230127
  Transmission Date: 20230418
  Serious: Yes (Hospitalization)
  Sender: FDA-Public Use
  Company Number: None

PATIENT
  Age: 25 Year
  Sex: Male
  Weight: 70.9 kg

DRUGS (16)
  1. CLOZAPINE [Suspect]
     Active Substance: CLOZAPINE
     Indication: Psychotic disorder
     Dates: start: 20221115, end: 20221209
  2. CLOZAPINE [Suspect]
     Active Substance: CLOZAPINE
     Dates: start: 20221112, end: 20221114
  3. CLOZAPINE [Suspect]
     Active Substance: CLOZAPINE
     Dates: start: 20221103, end: 20221105
  4. CLOZAPINE [Suspect]
     Active Substance: CLOZAPINE
     Dates: start: 20221031, end: 20221102
  5. CLOZAPINE [Suspect]
     Active Substance: CLOZAPINE
     Dates: start: 20221109, end: 20221111
  6. CLOZAPINE [Suspect]
     Active Substance: CLOZAPINE
     Dates: start: 20221025, end: 20221028
  7. CLOZAPINE [Suspect]
     Active Substance: CLOZAPINE
     Dates: start: 20221106, end: 20221108
  8. CLOZAPINE [Suspect]
     Active Substance: CLOZAPINE
     Dates: start: 20221028, end: 20221030
  9. VALPROATE SODIUM [Suspect]
     Active Substance: VALPROATE SODIUM
     Indication: Psychotic disorder
     Dosage: 500 MILLIGRAM DAILY; MORNING,
     Dates: start: 20220922
  10. VALPROATE SODIUM [Suspect]
     Active Substance: VALPROATE SODIUM
     Dosage: 1000 MILLIGRAM DAILY; EVENING,
     Dates: start: 20220922
  11. ZUCLOPENTHIXOL [Suspect]
     Active Substance: ZUCLOPENTHIXOL
     Indication: Product used for unknown indication
     Dates: start: 20220923, end: 20220929
  12. ZUCLOPENTHIXOL [Suspect]
     Active Substance: ZUCLOPENTHIXOL
     Dates: start: 20221003, end: 20221027
  13. ZUCLOPENTHIXOL [Suspect]
     Active Substance: ZUCLOPENTHIXOL
     Dates: start: 20220921, end: 20220922
  14. ZUCLOPENTHIXOL [Suspect]
     Active Substance: ZUCLOPENTHIXOL
     Dates: start: 20220930, end: 20221003
  15. ZUCLOPENTHIXOL [Suspect]
     Active Substance: ZUCLOPENTHIXOL
     Dosage: IF NECESSARY, MAX 200 MG/24H,
     Dates: start: 20220921
  16. ZUCLOPENTHIXOL [Suspect]
     Active Substance: ZUCLOPENTHIXOL
     Dates: start: 20220929, end: 20220930

REACTIONS (1)
  - Neutropenia [Not Recovered/Not Resolved]

NARRATIVE: CASE EVENT DATE: 20221120
